FAERS Safety Report 6699179-0 (Version None)
Quarter: 2010Q2

REPORT INFORMATION
  Report Type: 
  Country: None (occurrence: None)
  Receive Date: 20100421
  Receipt Date: 20090616
  Transmission Date: 20101027
  Serious: Yes (Other)
  Sender: FDA-Public Use
  Company Number: 20090250

PATIENT
  Sex: Female
  Weight: 91.173 kg

DRUGS (4)
  1. DEXFERRUM [Suspect]
     Indication: IRON DEFICIENCY ANAEMIA
     Dosage: 25 MG TEST DOSE INTRAVENOUS
     Route: 042
     Dates: start: 20090612, end: 20090612
  2. DEXFERRUM [Suspect]
     Indication: IRON DEFICIENCY ANAEMIA
     Dosage: 25 MG TEST DOSE INTRAVENOUS
     Route: 042
     Dates: start: 20090612, end: 20090612
  3. BENADRYL [Concomitant]
  4. DECADRON [Concomitant]

REACTIONS (2)
  - PRURITUS [None]
  - RASH [None]
